FAERS Safety Report 5736905-9 (Version None)
Quarter: 2008Q2

REPORT INFORMATION
  Report Type: 
  Country: None (occurrence: None)
  Receive Date: 20080509
  Receipt Date: 20080506
  Transmission Date: 20081010
  Serious: Yes (Other)
  Sender: FDA-Public Use
  Company Number: B0518860A

PATIENT
  Age: 28 Year
  Sex: Male

DRUGS (3)
  1. ZIDOVUDINE [Suspect]
     Indication: HIV INFECTION
  2. LAMIVUDINE [Suspect]
     Indication: HIV INFECTION
  3. EFAVIRENZ [Suspect]
     Indication: HIV INFECTION

REACTIONS (4)
  - BORDERLINE LEPROSY [None]
  - IMMUNE RECONSTITUTION SYNDROME [None]
  - PERIPHERAL NERVE LESION [None]
  - TUBERCULOID LEPROSY [None]
